FAERS Safety Report 10276978 (Version 4)
Quarter: 2014Q3

REPORT INFORMATION
  Report Type: Report from Study
  Country: FR (occurrence: FR)
  Receive Date: 20140703
  Receipt Date: 20140814
  Transmission Date: 20150326
  Serious: Yes (Hospitalization)
  Sender: FDA-Public Use
  Company Number: FR-BRISTOL-MYERS SQUIBB COMPANY-20128898

PATIENT
  Age: 69 Year
  Sex: Female
  Weight: 130 kg

DRUGS (18)
  1. DAFALGAN [Concomitant]
     Active Substance: ACETAMINOPHEN
  2. DACARBAZINE. [Suspect]
     Active Substance: DACARBAZINE
     Indication: METASTATIC MALIGNANT MELANOMA
     Route: 042
     Dates: start: 20131014, end: 20131126
  3. AUGMENTIN [Concomitant]
     Active Substance: AMOXICILLIN\CLAVULANATE POTASSIUM
     Dates: start: 20140104, end: 201401
  4. LOVENOX [Concomitant]
     Active Substance: ENOXAPARIN SODIUM
  5. ALDACTONE [Concomitant]
     Active Substance: SPIRONOLACTONE
  6. ASPEGIC [Concomitant]
     Active Substance: ASPIRIN DL-LYSINE
  7. PLACEBO [Suspect]
     Active Substance: UNSPECIFIED INGREDIENT
     Indication: METASTATIC MALIGNANT MELANOMA
     Route: 042
     Dates: start: 20131014, end: 20131126
  8. IPILIMUMAB [Suspect]
     Active Substance: IPILIMUMAB
  9. INEXIUM [Concomitant]
     Active Substance: ESOMEPRAZOLE
  10. GABAPENTINE [Concomitant]
     Active Substance: GABAPENTIN
     Dates: start: 20131001
  11. TINZAPARIN [Concomitant]
     Active Substance: TINZAPARIN
     Dates: start: 20131001
  12. SKENAN [Concomitant]
     Active Substance: MORPHINE SULFATE
     Dates: start: 20130924
  13. KARDEGIC [Concomitant]
     Active Substance: ASPIRIN LYSINE
  14. ACTISKENAN [Concomitant]
     Active Substance: MORPHINE SULFATE
     Dates: start: 201310
  15. LAROXYL [Concomitant]
     Active Substance: AMITRIPTYLINE
     Dates: start: 20131126
  16. MORPHINE [Concomitant]
     Active Substance: MORPHINE
  17. DUPHALAC [Concomitant]
     Active Substance: LACTULOSE
  18. HYDROCORTISONE. [Concomitant]
     Active Substance: HYDROCORTISONE
     Dates: start: 20131217

REACTIONS (2)
  - Device related sepsis [Recovered/Resolved]
  - Erysipelas [Recovered/Resolved]

NARRATIVE: CASE EVENT DATE: 20140128
